FAERS Safety Report 24134230 (Version 1)
Quarter: 2024Q3

REPORT INFORMATION
  Report Type: Spontaneous
  Country: FR (occurrence: FR)
  Receive Date: 20240724
  Receipt Date: 20240724
  Transmission Date: 20241017
  Serious: Yes (Hospitalization)
  Sender: BOEHRINGER INGELHEIM
  Company Number: FR-BoehringerIngelheim-2024-BI-040432

PATIENT
  Age: 16 Year
  Sex: Female
  Weight: 50 kg

DRUGS (6)
  1. CLONIDINE [Suspect]
     Active Substance: CLONIDINE
     Indication: Agitation postoperative
     Dosage: DAILY DOSE: 60 MILLIGRAM(S), FORM STRENGTH: 0.15 MILLIGRAM PER MILLILITRE
     Route: 042
     Dates: start: 20240624, end: 20240624
  2. NALBUPHINE HYDROCHLORIDE [Suspect]
     Active Substance: NALBUPHINE HYDROCHLORIDE
     Indication: Procedural pain
     Route: 040
     Dates: start: 20240624, end: 20240625
  3. MIDAZOLAM MIDAZOLAM [Concomitant]
     Indication: Product used for unknown indication
     Dates: start: 20240624
  4. FAMOTIDINE [Concomitant]
     Active Substance: FAMOTIDINE
     Indication: Product used for unknown indication
     Route: 048
     Dates: start: 20240623
  5. LOVENOX [Concomitant]
     Active Substance: ENOXAPARIN SODIUM
     Indication: Anti factor Xa assay
     Dosage: 4000 IU/0.4 ML
  6. IBUPROFEN [Concomitant]
     Active Substance: IBUPROFEN
     Indication: Product used for unknown indication
     Route: 048

REACTIONS (1)
  - Coma [Recovered/Resolved]

NARRATIVE: CASE EVENT DATE: 20240624
